FAERS Safety Report 7442180-X (Version None)
Quarter: 2011Q2

REPORT INFORMATION
  Report Type: 
  Country: None (occurrence: None)
  Receive Date: 20110419
  Receipt Date: 20110404
  Transmission Date: 20111010
  Serious: Yes (Death, Hospitalization, Other)
  Sender: FDA-Public Use
  Company Number: US-JNJFOC-20110401913

PATIENT
  Age: 66 Year
  Sex: Male
  Weight: 68.1 kg

DRUGS (32)
  1. DACOGEN [Suspect]
     Indication: ACUTE MYELOID LEUKAEMIA
     Dosage: ORAL
     Route: 048
  2. ALLOPURINOL [Concomitant]
  3. PRAMOXINE HYDROCHLORIDE (PRAMOCAINE HYDROCHLORIDE) [Concomitant]
  4. ZINC OXIDE (ZINC OXIDE) [Concomitant]
  5. THIAMINE (THIAMINE) [Concomitant]
  6. ACETAMINOPHEN [Concomitant]
  7. LOPERAMIDE [Concomitant]
  8. ESOMEPRAZOLE (ESOMEPRAZOLE) [Concomitant]
  9. LOVASTATIN [Concomitant]
  10. ALBUTEROL IPRATROPIUM (SALBUTAMOL W/IPRATROPIUM) [Concomitant]
  11. CALCIUM CARBONATE [Concomitant]
  12. ACYCLOVIR [Concomitant]
  13. CYANOCOBALAMIN [Concomitant]
  14. FOLIC ACID [Concomitant]
  15. SODIUM CHLORIDE 0.9% [Concomitant]
  16. GUAIFENESIN/DEXTROMETHORPHAN (TUSSIN DM) [Concomitant]
  17. MINERAL OIL W/PETROLATUM (OCULAR LUBRICANT) [Concomitant]
  18. BACITRACIN W/NEOMYCIN/POLYMIXIN (NEOSPORIN) [Concomitant]
  19. VISCOUS LIDOCAINE (LIDOCAINE HYDROCHLORIDE) [Concomitant]
  20. METOPROLOL SUCCINATE EXTENDED RELEASE (METOPROLOL SUCCINATE) [Concomitant]
  21. CEFEPIME [Concomitant]
  22. POLYVINYL ALCOHOL (POLYVINYL ALCOHOL) [Concomitant]
  23. SALINE DROPS (OTHER NASAL PREPARATIONS) [Concomitant]
  24. SENNA (SENNA ALEXANDRINA) [Concomitant]
  25. PROCHLORPERAZINE MALEATE [Concomitant]
  26. DIPHENHYDRAMINE HCL [Concomitant]
  27. MAALOX (ALUDROX) [Concomitant]
  28. DIPHENHYDRAMINE HCL [Concomitant]
  29. TARGRETIN [Suspect]
     Indication: ACUTE MYELOID LEUKAEMIA
     Dosage: 200 MG/M2,ORAL
     Route: 048
     Dates: start: 20110323, end: 20110323
  30. FUROSEMIDE [Concomitant]
  31. QUINAPRIL HCL [Concomitant]
  32. DIPHENHYDRAMINE HCL [Concomitant]

REACTIONS (15)
  - SMALL INTESTINAL OBSTRUCTION [None]
  - BACK PAIN [None]
  - CONFUSIONAL STATE [None]
  - PNEUMONIA ASPIRATION [None]
  - SHOCK [None]
  - CONTINUOUS HAEMODIAFILTRATION [None]
  - NAUSEA [None]
  - VOMITING [None]
  - DIARRHOEA [None]
  - HYPOXIA [None]
  - RESPIRATORY FAILURE [None]
  - FALL [None]
  - MUSCULOSKELETAL PAIN [None]
  - RENAL FAILURE ACUTE [None]
  - DELIRIUM TREMENS [None]
